FAERS Safety Report 5495151-7 (Version None)
Quarter: 2007Q4

REPORT INFORMATION
  Report Type: 
  Country: None (occurrence: None)
  Receive Date: 20071024
  Receipt Date: 20071022
  Transmission Date: 20080405
  Serious: Yes (Hospitalization)
  Sender: FDA-Public Use
  Company Number: US-BOEHRINGER INGELHEIM PHARMACEUTICALS, INC.-2007-BP-17656BP

PATIENT
  Sex: Female

DRUGS (17)
  1. SPIRIVA [Suspect]
     Indication: CHRONIC OBSTRUCTIVE PULMONARY DISEASE
     Route: 055
     Dates: start: 20040101
  2. FLOVENT [Concomitant]
     Indication: CHRONIC OBSTRUCTIVE PULMONARY DISEASE
  3. ALBUTEROL [Concomitant]
     Indication: CHRONIC OBSTRUCTIVE PULMONARY DISEASE
  4. CYMBALTA [Concomitant]
  5. LASIX [Concomitant]
  6. KLOR-CON [Concomitant]
  7. MILK OF MAGNESIA [Concomitant]
     Indication: CONSTIPATION
  8. METHADONE HCL [Concomitant]
  9. LYRICA [Concomitant]
  10. XANAX [Concomitant]
  11. PREVACID [Concomitant]
  12. NEURONTIN [Concomitant]
     Indication: NERVE INJURY
  13. AMITRIPTYLINE HCL [Concomitant]
  14. IMITREX [Concomitant]
  15. ADVIL LIQUI-GELS [Concomitant]
  16. TRAMADOL HCL [Concomitant]
  17. OXYCODONE HCL [Concomitant]

REACTIONS (5)
  - DIZZINESS [None]
  - DYSPNOEA [None]
  - PULMONARY EMBOLISM [None]
  - ROAD TRAFFIC ACCIDENT [None]
  - VISION BLURRED [None]
